FAERS Safety Report 25014991 (Version 1)
Quarter: 2025Q1

REPORT INFORMATION
  Report Type: Spontaneous
  Country: ZA (occurrence: ZA)
  Receive Date: 20250226
  Receipt Date: 20250226
  Transmission Date: 20250409
  Serious: Yes (Other)
  Sender: PFIZER
  Company Number: ZA-PFIZER INC-PV202500023045

PATIENT
  Age: 54 Year
  Sex: Female
  Weight: 93 kg

DRUGS (2)
  1. METHOTREXATE SODIUM [Suspect]
     Active Substance: METHOTREXATE SODIUM
     Dosage: 12.5 MG, WEEKLY
     Dates: start: 2022, end: 2022
  2. CHLOROQUINE [Concomitant]
     Active Substance: CHLOROQUINE
     Dosage: 200 MG, DAILY
     Route: 048
     Dates: start: 2022, end: 2022

REACTIONS (1)
  - Illness [Unknown]

NARRATIVE: CASE EVENT DATE: 20220101
